FAERS Safety Report 23927069 (Version 1)
Quarter: 2024Q2

REPORT INFORMATION
  Report Type: Spontaneous
  Country: US (occurrence: None)
  Receive Date: 20240531
  Receipt Date: 20240531
  Transmission Date: 20240716
  Serious: Yes (Life-Threatening)
  Sender: FDA-Public Use
  Company Number: None

PATIENT
  Age: 55 Year
  Sex: Female
  Weight: 116.1 kg

DRUGS (1)
  1. RYBELSUS [Suspect]
     Active Substance: SEMAGLUTIDE
     Route: 048
     Dates: start: 20230102, end: 20240531

REACTIONS (3)
  - Inability to afford medication [None]
  - Product use issue [None]
  - Blood glucose increased [None]

NARRATIVE: CASE EVENT DATE: 20240531
